FAERS Safety Report 4978267-0 (Version None)
Quarter: 2006Q2

REPORT INFORMATION
  Report Type: 
  Country: None (occurrence: None)
  Receive Date: 20060417
  Receipt Date: 20060410
  Transmission Date: 20061013
  Serious: Yes (Other)
  Sender: FDA-Public Use
  Company Number: HQWYE552723JAN04

PATIENT
  Age: 61 Year
  Sex: Female

DRUGS (1)
  1. PREMPRO [Suspect]

REACTIONS (3)
  - BREAST CANCER METASTATIC [None]
  - CALCINOSIS [None]
  - SPLEEN DISORDER [None]
